FAERS Safety Report 18552625 (Version 3)
Quarter: 2022Q2

REPORT INFORMATION
  Report Type: Report from Study
  Country: US (occurrence: US)
  Receive Date: 20201127
  Receipt Date: 20220429
  Transmission Date: 20220721
  Serious: Yes (Hospitalization, Other)
  Sender: FDA-Public Use
  Company Number: US-ACADIA PHARMACEUTICALS INC.-ACA-2020-PIM-003487

PATIENT
  Age: 73 Year
  Sex: Male

DRUGS (2)
  1. NUPLAZID [Suspect]
     Active Substance: PIMAVANSERIN TARTRATE
     Indication: Parkinson^s disease
     Dosage: 34 MILLIGRAM, QD
     Route: 048
     Dates: start: 20200409
  2. NORTHERA [Suspect]
     Active Substance: DROXIDOPA
     Indication: Product used for unknown indication
     Dosage: UNK

REACTIONS (5)
  - Blood pressure decreased [Unknown]
  - Gait inability [Unknown]
  - Faecaloma [Unknown]
  - Blood glucose decreased [Unknown]
  - Constipation [Unknown]

NARRATIVE: CASE EVENT DATE: 20210926
